FAERS Safety Report 5119452-7 (Version None)
Quarter: 2006Q3

REPORT INFORMATION
  Report Type: 
  Country: None (occurrence: None)
  Receive Date: 20060929
  Receipt Date: 20060920
  Transmission Date: 20061208
  Serious: Yes (Other)
  Sender: FDA-Public Use
  Company Number: 2006113332

PATIENT
  Age: 79 Year
  Sex: Female
  Weight: 81.6475 kg

DRUGS (10)
  1. XALATAN [Suspect]
     Indication: ABNORMAL SENSATION IN EYE
     Dosage: OPHTHALMIC
     Dates: start: 20060101
  2. TIMOLOL MALEATE [Suspect]
  3. ATENOLOL [Concomitant]
  4. IMDUR [Concomitant]
  5. DIGOXIN [Concomitant]
  6. ZETIA [Concomitant]
  7. ALL OTHER THERAPEUTIC PRODUCTS (ALL OTHER THERAPEUTIC PRODUCTS) [Concomitant]
  8. GLYBURIDE [Concomitant]
  9. PROTONIX [Concomitant]
  10. LESCOL XL [Concomitant]

REACTIONS (3)
  - BLOOD CHOLESTEROL INCREASED [None]
  - BLOOD TRIGLYCERIDES INCREASED [None]
  - INTRAOCULAR PRESSURE INCREASED [None]
